FAERS Safety Report 10157939 (Version 2)
Quarter: 2014Q2

REPORT INFORMATION
  Report Type: Report from Study
  Country: US (occurrence: US)
  Receive Date: 20140507
  Receipt Date: 20140624
  Transmission Date: 20141212
  Serious: Yes (Hospitalization, Other)
  Sender: FDA-Public Use
  Company Number: PHEH2014US008945

PATIENT
  Age: 57 Year
  Sex: Male

DRUGS (74)
  1. TOBI [Suspect]
     Indication: PNEUMONIA
     Dosage: 300 MG, BID
     Route: 055
  2. TOBI [Suspect]
     Indication: BRONCHITIS
  3. TOBI [Suspect]
     Indication: OBSTRUCTIVE AIRWAYS DISORDER
  4. PREDNISONE [Suspect]
     Indication: PNEUMONIA
     Dosage: 10 MG, QD
     Route: 048
  5. PREDNISONE [Suspect]
     Indication: BRONCHITIS
  6. PREDNISONE [Suspect]
     Indication: OBSTRUCTIVE AIRWAYS DISORDER
  7. DUONEB [Concomitant]
     Indication: PNEUMONIA
     Dosage: 2.5 MG, EVERY 4 TO 6 HOURS
     Route: 055
  8. DUONEB [Concomitant]
     Indication: BRONCHITIS
  9. DUONEB [Concomitant]
     Indication: OBSTRUCTIVE AIRWAYS DISORDER
  10. DUONEB [Concomitant]
     Indication: DYSPNOEA
  11. PROLASTIN [Concomitant]
     Indication: PNEUMONIA
     Dosage: 60 MG PER KG, ONCE WEEK
     Route: 042
  12. PROLASTIN [Concomitant]
     Indication: BRONCHITIS
  13. PROLASTIN [Concomitant]
     Indication: OBSTRUCTIVE AIRWAYS DISORDER
  14. ZITHROMAX [Concomitant]
     Indication: PNEUMONIA
     Dosage: 250 MG, 3 TIMES A WEEK (30 TABLET)
     Route: 048
  15. ZITHROMAX [Concomitant]
     Indication: BRONCHITIS
  16. ZITHROMAX [Concomitant]
     Indication: OBSTRUCTIVE AIRWAYS DISORDER
  17. VALIUM [Concomitant]
     Indication: PNEUMONIA
     Dosage: 10 MG, TID (1 TABLETS BY MOUTH 3 TIMES DAILY) (30 TABLET)
     Route: 048
  18. VALIUM [Concomitant]
     Indication: BRONCHITIS
  19. VALIUM [Concomitant]
     Indication: OBSTRUCTIVE AIRWAYS DISORDER
  20. BENADRYL [Concomitant]
     Indication: PNEUMONIA
     Dosage: 25 MG, 30 MINUTES PRIOR TO PROLASTIN AND AS NEEDED FOR ITCHING
     Route: 048
  21. BENADRYL [Concomitant]
     Indication: BRONCHITIS
  22. BENADRYL [Concomitant]
     Indication: OBSTRUCTIVE AIRWAYS DISORDER
  23. BENADRYL [Concomitant]
     Indication: PRURITUS
  24. PROZAC [Concomitant]
     Indication: PNEUMONIA
     Dosage: 10 MG, UNK
     Route: 048
  25. PROZAC [Concomitant]
     Indication: BRONCHITIS
  26. PROZAC [Concomitant]
     Indication: OBSTRUCTIVE AIRWAYS DISORDER
  27. ADVAIR DISKUS [Concomitant]
     Indication: PNEUMONIA
     Dosage: 500 UG, BID (1 PUFF INTO THE LUNGS 2 TIMES DAILY)
     Route: 055
  28. ADVAIR DISKUS [Concomitant]
     Indication: BRONCHITIS
  29. ADVAIR DISKUS [Concomitant]
     Indication: OBSTRUCTIVE AIRWAYS DISORDER
  30. LASIX [Concomitant]
     Indication: PNEUMONIA
     Dosage: 40 MG, BID
     Route: 048
  31. LASIX [Concomitant]
     Indication: BRONCHITIS
  32. LASIX [Concomitant]
     Indication: OBSTRUCTIVE AIRWAYS DISORDER
  33. HEPARIN [Concomitant]
     Indication: PNEUMONIA
     Dosage: 10 ML, PRN
  34. HEPARIN [Concomitant]
     Indication: BRONCHITIS
     Dosage: 5 ML,
  35. HEPARIN [Concomitant]
     Indication: OBSTRUCTIVE AIRWAYS DISORDER
  36. LORTAB [Concomitant]
     Indication: PNEUMONIA
     Dosage: 500 MG, QID (1 TABLET BY MOUTH 4 TIMES DAILY)
     Route: 048
  37. LORTAB [Concomitant]
     Indication: BRONCHITIS
  38. LORTAB [Concomitant]
     Indication: OBSTRUCTIVE AIRWAYS DISORDER
  39. GLUCOPHAGE [Concomitant]
     Indication: PNEUMONIA
     Dosage: 500 MG, QD
     Route: 048
  40. GLUCOPHAGE [Concomitant]
     Indication: BRONCHITIS
  41. GLUCOPHAGE [Concomitant]
     Indication: OBSTRUCTIVE AIRWAYS DISORDER
  42. MORPHINE [Concomitant]
     Indication: PNEUMONIA
     Dosage: 20 MG, Q6H (MAY ALSO TAKE 1 ML EVERY 1 HOUR AS NEEDED FOR INCREASED SOB)
  43. MORPHINE [Concomitant]
     Indication: BRONCHITIS
     Dosage: 2 MG, X2
  44. MORPHINE [Concomitant]
     Indication: OBSTRUCTIVE AIRWAYS DISORDER
  45. MORPHINE [Concomitant]
     Indication: DYSPNOEA
  46. PRILOSEC [Concomitant]
     Indication: PNEUMONIA
     Dosage: 20 MG, QD (ONE CAPSULE BY MOUTH DAILY)
     Route: 048
  47. PRILOSEC [Concomitant]
     Indication: BRONCHITIS
  48. PRILOSEC [Concomitant]
     Indication: OBSTRUCTIVE AIRWAYS DISORDER
  49. OXYCODONE [Concomitant]
     Indication: PNEUMONIA
     Dosage: 5 MG, BID
     Route: 048
  50. OXYCODONE [Concomitant]
     Indication: BRONCHITIS
  51. OXYCODONE [Concomitant]
     Indication: OBSTRUCTIVE AIRWAYS DISORDER
  52. OXYGEN [Concomitant]
     Indication: PNEUMONIA
  53. OXYGEN [Concomitant]
     Indication: BRONCHITIS
  54. OXYGEN [Concomitant]
     Indication: OBSTRUCTIVE AIRWAYS DISORDER
  55. POTASSIUM [Concomitant]
     Indication: PNEUMONIA
     Dosage: 20 DF, QD
     Route: 048
  56. POTASSIUM [Concomitant]
     Indication: BRONCHITIS
  57. POTASSIUM [Concomitant]
     Indication: OBSTRUCTIVE AIRWAYS DISORDER
  58. SELSUN [Concomitant]
     Indication: PNEUMONIA
  59. SELSUN [Concomitant]
     Indication: BRONCHITIS
  60. SELSUN [Concomitant]
     Indication: OBSTRUCTIVE AIRWAYS DISORDER
  61. TRAZODONE [Concomitant]
     Indication: PNEUMONIA
     Dosage: 150 MG, BID (EVERY EVENING 2 TIMES A NIGHT)
     Route: 048
  62. TRAZODONE [Concomitant]
     Indication: BRONCHITIS
  63. TRAZODONE [Concomitant]
     Indication: OBSTRUCTIVE AIRWAYS DISORDER
  64. COMBIVENT [Concomitant]
     Dosage: UNK UKN, UNK
  65. DURAGESIC [Concomitant]
     Dosage: 1 PATCH ONTO THE SKIN EVERY 72 HOURS
  66. ROXANOL [Concomitant]
     Indication: DYSPNOEA
     Dosage: 1 ML, EVERY 6 HOURS (1 ML EVERY 1 HOURS AS NEEDED)
  67. HYDROCODONE [Concomitant]
     Dosage: UNK UKN, UNK
  68. INSULIN [Concomitant]
     Dosage: UNK UKN, UNK
  69. SOLU MEDROL [Concomitant]
     Dosage: 125 MG, UNK
     Route: 042
  70. HUMALOG [Concomitant]
     Dosage: 0 TO 12 UNITS UNDER THE SKIN 4 TIMESS DAILY (BEFORE MEALS AND NIGHTLY)
  71. K-DUR [Concomitant]
     Dosage: 30 MEQ, MOUTH DAILY
  72. SENOKOT                                 /UNK/ [Concomitant]
     Dosage: 1 TABLETS BY MOUTH 4 TIMES DAILY
  73. SORBITOL [Concomitant]
     Dosage: 30 ML, BY MOUTH DAILY
  74. TRAZODONE HCL [Concomitant]
     Dosage: 200 MG, BY MOUTH EVERY EVENING

REACTIONS (59)
  - Bacterial disease carrier [Unknown]
  - Pseudomonas infection [Unknown]
  - Chronic obstructive pulmonary disease [Unknown]
  - Pulmonary function test abnormal [Unknown]
  - Pulmonary arterial hypertension [Unknown]
  - Carbon monoxide diffusing capacity decreased [Unknown]
  - Hyperhidrosis [Unknown]
  - Respiratory distress [Unknown]
  - Pulmonary artery dilatation [Unknown]
  - Lung disorder [Unknown]
  - Productive cough [Unknown]
  - Breath sounds abnormal [Unknown]
  - Sputum discoloured [Unknown]
  - Rhonchi [Unknown]
  - Alpha-1 anti-trypsin deficiency [Unknown]
  - Dyspnoea [Unknown]
  - Pyrexia [Unknown]
  - Wheezing [Unknown]
  - Fatigue [Unknown]
  - Blood gases abnormal [Unknown]
  - Capillary disorder [Unknown]
  - Emphysema [Unknown]
  - Lung infiltration [Unknown]
  - Systemic inflammatory response syndrome [Unknown]
  - Bronchiectasis [Unknown]
  - Acute respiratory failure [Unknown]
  - Bladder cancer [Unknown]
  - Sepsis [Unknown]
  - Renal failure chronic [Unknown]
  - Blood creatinine increased [Unknown]
  - Glomerular filtration rate decreased [Unknown]
  - Diastolic dysfunction [Unknown]
  - Pulmonary oedema [Recovering/Resolving]
  - Pulmonary fibrosis [Unknown]
  - Pulmonary embolism [Unknown]
  - Encephalopathy [Unknown]
  - Sinus tachycardia [Unknown]
  - Heart rate increased [Unknown]
  - Pulmonary mass [Recovered/Resolved]
  - Interstitial lung disease [Unknown]
  - Bronchitis [Unknown]
  - Diabetes mellitus [Unknown]
  - Cardiomegaly [Unknown]
  - Abdominal distension [Unknown]
  - Arteriosclerosis [Unknown]
  - Pancreatic disorder [Unknown]
  - Anaemia [Unknown]
  - Deformity [Unknown]
  - Back pain [Unknown]
  - Drug abuse [Unknown]
  - Drug tolerance [Not Recovered/Not Resolved]
  - Dermatitis bullous [Unknown]
  - Fluid overload [Unknown]
  - Oedema [Recovering/Resolving]
  - Anxiety [Unknown]
  - Skin warm [Unknown]
  - Dry skin [Unknown]
  - Blood pressure decreased [Unknown]
  - Pain [Unknown]
